FAERS Safety Report 6374445-7 (Version None)
Quarter: 2009Q3

REPORT INFORMATION
  Report Type: 
  Country: None (occurrence: None)
  Receive Date: 20090924
  Receipt Date: 20090916
  Transmission Date: 20100115
  Serious: Yes (Other)
  Sender: FDA-Public Use
  Company Number: US-PFIZER INC-2004116007

PATIENT
  Sex: Female
  Weight: 59 kg

DRUGS (7)
  1. PROVERA [Suspect]
     Indication: HORMONE REPLACEMENT THERAPY
     Dosage: UNK
     Route: 048
     Dates: end: 19960101
  2. PREMARIN [Suspect]
     Indication: HORMONE REPLACEMENT THERAPY
     Dosage: UNK
     Route: 048
     Dates: end: 19960101
  3. PREMPRO [Suspect]
     Indication: HORMONE REPLACEMENT THERAPY
     Dosage: UNK
     Route: 048
     Dates: start: 19960101, end: 20020101
  4. LANOXIN [Concomitant]
     Indication: ARRHYTHMIA
     Dosage: UNK
     Dates: start: 19970101, end: 20040101
  5. COUMADIN [Concomitant]
     Dosage: UNK
     Dates: start: 20020101, end: 20040101
  6. WARFARIN [Concomitant]
     Dosage: UNK
     Dates: start: 20020101, end: 20040101
  7. FOSAMAX [Concomitant]
     Dosage: UNK
     Dates: start: 20020101, end: 20040101

REACTIONS (1)
  - OVARIAN CANCER [None]
